FAERS Safety Report 4582902-9 (Version None)
Quarter: 2005Q1

REPORT INFORMATION
  Report Type: 
  Country: None (occurrence: None)
  Receive Date: 20050127
  Receipt Date: 20040915
  Transmission Date: 20050727
  Serious: No
  Sender: FDA-Public Use
  Company Number: USA040978240

PATIENT
  Age: 52 Year
  Sex: Female
  Weight: 99 kg

DRUGS (1)
  1. STRATTERA [Suspect]
     Indication: SOMNOLENCE
     Dosage: 40 MG/2 DAY
     Dates: start: 20040801

REACTIONS (3)
  - HYPERPHAGIA [None]
  - POLYDIPSIA [None]
  - WEIGHT DECREASED [None]
